FAERS Safety Report 9513916 (Version 1)
Quarter: 2013Q3

REPORT INFORMATION
  Report Type: Spontaneous
  Country: GB (occurrence: GB)
  Receive Date: 20130910
  Receipt Date: 20130910
  Transmission Date: 20140515
  Serious: Yes (Other)
  Sender: FDA-Public Use
  Company Number: GB-PERRIGO-13GB009067

PATIENT
  Age: 20 Year
  Sex: Male

DRUGS (4)
  1. ACETAMINOPHEN 650MG ER 544 [Suspect]
     Indication: INTENTIONAL OVERDOSE
     Dosage: 30 TABLETS, OVER 1 TO 2 HOURS
     Route: 048
  2. CITALOPRAM [Suspect]
     Indication: INTENTIONAL OVERDOSE
     Dosage: UNK, OVER 1 TO 2 HOURS
     Route: 048
  3. CORICIDIN HBP COUGH AND COLD [Suspect]
     Indication: INTENTIONAL OVERDOSE
     Dosage: UNK, OVER 1 TO 2 HOURS
     Route: 048
  4. FLUOXETINE [Concomitant]
     Indication: PRODUCT USED FOR UNKNOWN INDICATION
     Route: 065

REACTIONS (5)
  - Intentional overdose [Recovered/Resolved]
  - Toxicity to various agents [Recovered/Resolved]
  - Alanine aminotransferase increased [Recovered/Resolved]
  - Agitation [Recovered/Resolved]
  - Product name confusion [Recovered/Resolved]
